FAERS Safety Report 9421765 (Version 1)
Quarter: 2013Q3

REPORT INFORMATION
  Report Type: Spontaneous
  Country: BR (occurrence: BR)
  Receive Date: 20130726
  Receipt Date: 20130726
  Transmission Date: 20140515
  Serious: Yes (Hospitalization)
  Sender: FDA-Public Use
  Company Number: BR-ASTRAZENECA-2013SE55193

PATIENT
  Age: 60 Year
  Sex: Male
  Weight: 99 kg

DRUGS (5)
  1. ATACAND HCT [Suspect]
     Indication: HYPERTENSION
     Dosage: 8/12.5 MG BID
     Route: 048
     Dates: start: 2007, end: 201306
  2. ATACAND HCT [Suspect]
     Indication: HYPERTENSION
     Dosage: 16/12.5 MG BID
     Route: 048
     Dates: start: 201306
  3. CRESTOR [Suspect]
     Indication: BLOOD CHOLESTEROL INCREASED
     Route: 048
     Dates: start: 2007, end: 201306
  4. CRESTOR [Suspect]
     Indication: BLOOD CHOLESTEROL INCREASED
     Route: 048
     Dates: start: 201306
  5. UNSPECIFIED [Concomitant]

REACTIONS (4)
  - Prostate cancer [Unknown]
  - Bone cancer [Unknown]
  - Laboratory test abnormal [Unknown]
  - Off label use [Not Recovered/Not Resolved]
